FAERS Safety Report 18243618 (Version 1)
Quarter: 2020Q3

REPORT INFORMATION
  Report Type: Spontaneous
  Country: US (occurrence: US)
  Receive Date: 20200908
  Receipt Date: 20200908
  Transmission Date: 20201103
  Serious: No
  Sender: FDA-Public Use
  Company Number: US-ALMIRALL, LLC-2019AQU000470

PATIENT

DRUGS (3)
  1. CETAPHIL CLEANSERS OILY SKIN (GLYCEROL\PANTHENOL) [Suspect]
     Active Substance: GLYCERIN\PANTHENOL
     Indication: PRODUCT USED FOR UNKNOWN INDICATION
     Route: 061
  2. VELTIN [Suspect]
     Active Substance: CLINDAMYCIN PHOSPHATE\TRETINOIN
     Indication: ACNE
     Dosage: ONCE NIGHTLY ON THE FACE
     Route: 061
     Dates: start: 201909
  3. TOPICAL PRODUCTS [Suspect]
     Active Substance: UNSPECIFIED INGREDIENT
     Indication: PRODUCT USED FOR UNKNOWN INDICATION
     Route: 061

REACTIONS (1)
  - Application site pain [Not Recovered/Not Resolved]

NARRATIVE: CASE EVENT DATE: 201909
